FAERS Safety Report 10486163 (Version 1)
Quarter: 2014Q3

REPORT INFORMATION
  Report Type: Spontaneous
  Country: US (occurrence: None)
  Receive Date: 20140929
  Receipt Date: 20140929
  Transmission Date: 20150326
  Serious: Yes (Other)
  Sender: FDA-Public Use
  Company Number: 2013-US-002305

PATIENT
  Age: 38 Year
  Sex: Female
  Weight: 43.1 kg

DRUGS (1)
  1. XYREM [Suspect]
     Active Substance: SODIUM OXYBATE
     Indication: NARCOLEPSY
     Route: 048
     Dates: start: 201308, end: 2013

REACTIONS (24)
  - Blood potassium decreased [None]
  - Myalgia [None]
  - Chest pain [None]
  - Fatigue [None]
  - Tremor [None]
  - Blood calcium decreased [None]
  - Muscle fatigue [None]
  - Arthralgia [None]
  - Weight decreased [None]
  - Palpitations [None]
  - Vision blurred [None]
  - Urticaria [None]
  - Extrasystoles [None]
  - Asthma [None]
  - Candida infection [None]
  - Rash [None]
  - Condition aggravated [None]
  - Anaphylactic reaction [None]
  - Peripheral swelling [None]
  - Tachycardia [None]
  - Dark circles under eyes [None]
  - Syncope [None]
  - Dyspnoea [None]
  - Blood pressure systolic increased [None]

NARRATIVE: CASE EVENT DATE: 2013
